FAERS Safety Report 9739267 (Version 2)
Quarter: 2013Q4

REPORT INFORMATION
  Report Type: Report from Study
  Country: US (occurrence: US)
  Receive Date: 20131209
  Receipt Date: 20131209
  Transmission Date: 20140711
  Serious: Yes (Hospitalization)
  Sender: FDA-Public Use
  Company Number: US-SA-CAMP-1002302

PATIENT
  Age: 34 Year
  Sex: Male
  Weight: 73.47 kg

DRUGS (13)
  1. ALEMTUZUMAB [Suspect]
     Indication: MULTIPLE SCLEROSIS
     Dosage: 24 MG, QD
     Route: 042
     Dates: start: 20100310, end: 20100312
  2. ALEMTUZUMAB [Suspect]
     Indication: MULTIPLE SCLEROSIS
     Dosage: 12 MG, QD
     Route: 042
     Dates: start: 20090316, end: 20090320
  3. IBUPROFEN [Concomitant]
     Indication: PROPHYLAXIS
     Dosage: UNK UNK, PRN
     Route: 048
     Dates: start: 20050701
  4. OMEGA 3 [Concomitant]
     Indication: SUPPLEMENTATION THERAPY
     Dosage: UNK UNK, QD
     Route: 048
     Dates: start: 20050701
  5. VITAMIN E [Concomitant]
     Indication: SUPPLEMENTATION THERAPY
     Dosage: UNK UNK, QD
     Route: 048
     Dates: start: 20050701
  6. ACETAMINOPHEN [Concomitant]
     Dosage: 650 MG, Q4H, PRN
     Route: 048
     Dates: start: 20130419
  7. DIPHENHYDRAMINE HYDROCHLORIDE [Concomitant]
     Dosage: 50 MG, Q6H, PRN
     Route: 042
     Dates: start: 20130420
  8. PANTOPRAZOLE [Concomitant]
     Dosage: 40 MG, QD
     Route: 048
     Dates: start: 20130420
  9. POTASSIUM CHLORIDE [Concomitant]
     Dosage: 50 ML, PRN
     Route: 042
     Dates: start: 20130419
  10. POTASSIUM PHOSPHATE DIBASIC [Concomitant]
     Dosage: 2 UDPKT, PRN
     Route: 048
     Dates: start: 20130419
  11. POTASSIUM W/SODIUM CHLORIDE [Concomitant]
     Dosage: 15 MMOL, 100ML
     Route: 042
     Dates: start: 20130419
  12. ZOLPIDEM TARTRATE [Concomitant]
     Dosage: 5 MG, BEDTIME, PRN
     Route: 048
     Dates: start: 20130419
  13. BENADRYL [Concomitant]
     Indication: PHARYNGEAL OEDEMA
     Dosage: UNK UNK, UNK
     Route: 065

REACTIONS (1)
  - Immune thrombocytopenic purpura [Recovered/Resolved]
